FAERS Safety Report 17009166 (Version 1)
Quarter: 2019Q4

REPORT INFORMATION
  Report Type: Spontaneous
  Country: US (occurrence: US)
  Receive Date: 20190929
  Receipt Date: 20190929
  Transmission Date: 20200122
  Serious: Yes (Hospitalization)
  Sender: FDA-Public Use
  Company Number: None

PATIENT
  Age: 6 Year
  Sex: Male

DRUGS (17)
  1. ALBUTEROL NEB SOLN [Concomitant]
  2. ALVESCO HFA [Concomitant]
  3. UPTRAVI [Concomitant]
     Active Substance: SELEXIPAG
  4. SPIRONOLACTONE. [Concomitant]
     Active Substance: SPIRONOLACTONE
  5. CETIRIZINE [Concomitant]
     Active Substance: CETIRIZINE HYDROCHLORIDE
  6. ADRENACLICK [Concomitant]
     Active Substance: EPINEPHRINE
  7. ALBUTEROL HFA [Concomitant]
     Active Substance: ALBUTEROL SULFATE
  8. NYSTATIN ORAL SUSP [Concomitant]
  9. SILDENAFIL. [Concomitant]
     Active Substance: SILDENAFIL
  10. WARFARIN [Concomitant]
     Active Substance: WARFARIN
  11. FUROSEMIDE. [Concomitant]
     Active Substance: FUROSEMIDE
  12. BUDESONIDE. [Concomitant]
     Active Substance: BUDESONIDE
  13. FLONASE [Concomitant]
     Active Substance: FLUTICASONE PROPIONATE
  14. NEOCATE SPLASH [Concomitant]
  15. OPSUMIT [Suspect]
     Active Substance: MACITENTAN
     Indication: PULMONARY ARTERIAL HYPERTENSION
     Route: 048
     Dates: start: 201704
  16. SODIUM CHLORIDE INHL NEB SOLN [Concomitant]
  17. NEOCATE JUNIOR [Concomitant]

REACTIONS (1)
  - Surgical failure [None]

NARRATIVE: CASE EVENT DATE: 20190925
